FAERS Safety Report 4741769-6 (Version None)
Quarter: 2005Q3

REPORT INFORMATION
  Report Type: 
  Country: None (occurrence: None)
  Receive Date: 20050808
  Receipt Date: 20050727
  Transmission Date: 20060218
  Serious: Yes (Life-Threatening, Other)
  Sender: FDA-Public Use
  Company Number: 2005098979

PATIENT
  Sex: Female
  Weight: 61 kg

DRUGS (6)
  1. XALATAN [Suspect]
     Indication: OPEN ANGLE GLAUCOMA
     Dosage: 0.0015?G (DAILY), OPHTHALMIC
     Route: 047
     Dates: start: 19971001, end: 20040701
  2. PLAVIX [Concomitant]
  3. BRINZOLAMIDE (BRINZOLAMIDE (BRINZOLAMIDE) [Concomitant]
  4. RISEDRONIC ACID (RISEDRONIC ACID) [Concomitant]
  5. PERINDOPIRL ERBUMINE/INDAPAMIDE HEMIHYDRATE (INDAPAMIDE HEMIHYDRATE, P [Concomitant]
  6. DILTIAZEM CHLORHYDRATE (DILTIAZEM HYDROCHLORIDE) [Concomitant]

REACTIONS (2)
  - CEREBROVASCULAR ACCIDENT [None]
  - PLATELET COUNT INCREASED [None]
